FAERS Safety Report 6699807-X (Version None)
Quarter: 2010Q2

REPORT INFORMATION
  Report Type: 
  Country: None (occurrence: None)
  Receive Date: 20100428
  Receipt Date: 20090924
  Transmission Date: 20101027
  Serious: No
  Sender: FDA-Public Use
  Company Number: A0829423A

PATIENT
  Sex: Female

DRUGS (1)
  1. LUXIQ [Suspect]

REACTIONS (1)
  - ACCIDENTAL EXPOSURE [None]
